FAERS Safety Report 5152291-X (Version None)
Quarter: 2006Q4

REPORT INFORMATION
  Report Type: 
  Country: None (occurrence: None)
  Receive Date: 20061116
  Receipt Date: 20060921
  Transmission Date: 20070319
  Serious: Yes (Hospitalization)
  Sender: FDA-Public Use
  Company Number: US-SOLVAY-00206003116

PATIENT
  Age: 24815 Day
  Sex: Male
  Weight: 80 kg

DRUGS (14)
  1. MARINOL [Suspect]
     Indication: DECREASED APPETITE
     Dosage: DAILY DOSE: 2.5 MILLIGRAM(S)
     Route: 048
  2. MARINOL [Suspect]
     Dosage: DAILY DOSE:  UNKNOWN
     Route: 048
  3. MARINOL [Suspect]
     Dosage: DAILY DOSE: 15 MILLIGRAM(S)
     Route: 048
     Dates: start: 20060516, end: 20060531
  4. TOPROL-XL [Concomitant]
     Indication: ILL-DEFINED DISORDER
     Dosage: DAILY DOSE: 50 MILLIGRAM(S)
     Route: 048
     Dates: start: 20060717
  5. ASPIRIN [Concomitant]
     Indication: ILL-DEFINED DISORDER
     Dosage: DAILY DOSE: 325 MILLIGRAM(S)
     Route: 048
  6. ZOCOR [Concomitant]
     Indication: ILL-DEFINED DISORDER
     Dosage: DAILY DOSE: 20 MILLIGRAM(S)
     Route: 048
  7. METFORMIN [Concomitant]
     Indication: ILL-DEFINED DISORDER
     Dosage: DAILY DOSE: 500 MILLIGRAM(S)
     Route: 048
  8. NPH INSULIN [Concomitant]
     Indication: ILL-DEFINED DISORDER
     Dosage: DAILY DOSE: 40 INTERNATIONAL UNIT(S)
     Route: 058
  9. CHLORPROMAZINE [Concomitant]
     Indication: ILL-DEFINED DISORDER
     Dosage: DAILY DOSE:  25 MILLIGRAMS AS NEEDED
     Route: 048
     Dates: start: 20060726
  10. QUINIDINE SULFATE [Concomitant]
     Indication: ILL-DEFINED DISORDER
     Dosage: DAILY DOSE: 900 MILLIGRAM(S)
     Route: 048
  11. PAXIL [Concomitant]
     Indication: ILL-DEFINED DISORDER
     Dosage: DAILY DOSE: 20 MILLIGRAM(S)
     Route: 048
  12. XODOL [Concomitant]
     Indication: ILL-DEFINED DISORDER
     Dosage: DAILY DOSE: TAKES AS NEEDED
     Route: 048
     Dates: start: 20060307
  13. AMBIEN [Concomitant]
     Indication: ILL-DEFINED DISORDER
     Dosage: DAILY DOSE:  TAKES 10 MG DAILY AS NEEDED
     Route: 048
  14. CHEMOTHERAPY WITH HYCAMPTIN [Concomitant]
     Indication: SMALL CELL LUNG CANCER STAGE UNSPECIFIED
     Dosage: DAILY DOSE: UNKNOWN
     Route: 065

REACTIONS (3)
  - FALL [None]
  - ORTHOSTATIC HYPOTENSION [None]
  - TREMOR [None]
